FAERS Safety Report 14035389 (Version 1)
Quarter: 2017Q4

REPORT INFORMATION
  Report Type: Spontaneous
  Country: FR (occurrence: FR)
  Receive Date: 20171003
  Receipt Date: 20171003
  Transmission Date: 20180321
  Serious: Yes (Hospitalization)
  Sender: FDA-Public Use
  Company Number: FR-SA-2017SA179126

PATIENT
  Age: 55 Year
  Sex: Male

DRUGS (9)
  1. CALCIPARINE [Suspect]
     Active Substance: HEPARIN CALCIUM
     Route: 042
     Dates: start: 20170901
  2. TRAMADOL. [Concomitant]
     Active Substance: TRAMADOL
  3. PANTOPRAZOLE SODIUM. [Suspect]
     Active Substance: PANTOPRAZOLE SODIUM
     Route: 042
     Dates: start: 20170823, end: 20170829
  4. LERCANIDIPINE [Concomitant]
     Active Substance: LERCANIDIPINE
  5. ENALAPRIL [Concomitant]
     Active Substance: ENALAPRIL
  6. LOVENOX [Suspect]
     Active Substance: ENOXAPARIN SODIUM
     Route: 058
     Dates: start: 20170824, end: 20170831
  7. ACUPAN [Suspect]
     Active Substance: NEFOPAM HYDROCHLORIDE
     Route: 042
     Dates: start: 20170822, end: 20170830
  8. SOLUDACTONE [Suspect]
     Active Substance: CANRENOATE POTASSIUM\TROMETHAMINE
     Route: 048
     Dates: start: 20170826, end: 20170830
  9. FUROSEMIDE. [Suspect]
     Active Substance: FUROSEMIDE
     Route: 048
     Dates: start: 20170826, end: 20170830

REACTIONS (1)
  - Rash morbilliform [Recovered/Resolved]

NARRATIVE: CASE EVENT DATE: 20170827
